FAERS Safety Report 7803711-0 (Version None)
Quarter: 2011Q4

REPORT INFORMATION
  Report Type: 
  Country: None (occurrence: None)
  Receive Date: 20111010
  Receipt Date: 20110923
  Transmission Date: 20120403
  Serious: No
  Sender: FDA-Public Use
  Company Number: US-BIOGENIDEC-2011BI036790

PATIENT
  Age: 49 Year
  Sex: Female

DRUGS (3)
  1. AVONEX [Suspect]
     Indication: MULTIPLE SCLEROSIS
     Route: 030
     Dates: start: 20030101
  2. PHENERGAN HCL [Concomitant]
     Route: 048
  3. AVONEX [Suspect]
     Route: 030
     Dates: start: 19980101, end: 20030101

REACTIONS (4)
  - MEMORY IMPAIRMENT [None]
  - FEELING COLD [None]
  - TREMOR [None]
  - ABDOMINAL DISCOMFORT [None]
